FAERS Safety Report 22131536 (Version 1)
Quarter: 2023Q1

REPORT INFORMATION
  Report Type: Spontaneous
  Country: US (occurrence: None)
  Receive Date: 20230322
  Receipt Date: 20230322
  Transmission Date: 20230417
  Serious: Yes (Hospitalization)
  Sender: FDA-Public Use
  Company Number: None

PATIENT
  Sex: Female

DRUGS (12)
  1. GAMUNEX-C [Suspect]
     Active Substance: HUMAN IMMUNOGLOBULIN G
     Indication: Encephalitis
     Dosage: OTHER QUANTITY : 10 GM/100ML;?FREQUENCY : AS DIRECTED;?
     Route: 042
     Dates: start: 20230224
  2. GAMUNEX-C [Suspect]
     Active Substance: HUMAN IMMUNOGLOBULIN G
     Indication: Encephalomyelitis
     Dosage: OTHER QUANTITY : 30 GM (300ML);?FREQUENCY : AS DIRECTED;?
     Route: 042
  3. AZITHROMYCIN [Concomitant]
     Active Substance: AZITHROMYCIN
  4. DOXYCYCLINE HYCLATE [Concomitant]
     Active Substance: DOXYCYCLINE HYCLATE
  5. FLUOXETINE [Concomitant]
  6. GLUTATHIONE [Concomitant]
     Active Substance: GLUTATHIONE
  7. K PHOS/MACL [Concomitant]
  8. MAGNESIUM OXIDE [Concomitant]
     Active Substance: MAGNESIUM OXIDE
  9. MULTIPLE VIT [Concomitant]
  10. NAPROXEN [Concomitant]
     Active Substance: NAPROXEN
  11. NYSTATIN [Concomitant]
     Active Substance: NYSTATIN
  12. VITAMIN C [Concomitant]
     Active Substance: ASCORBIC ACID

REACTIONS (1)
  - Hospitalisation [None]
